FAERS Safety Report 22269009 (Version 9)
Quarter: 2024Q1

REPORT INFORMATION
  Report Type: Report from Study
  Country: US (occurrence: US)
  Receive Date: 20230501
  Receipt Date: 20240314
  Transmission Date: 20240410
  Serious: Yes (Other)
  Sender: FDA-Public Use
  Company Number: US-002147023-NVSC2023US099221

PATIENT
  Age: 74 Year
  Sex: Female
  Weight: 63.492 kg

DRUGS (4)
  1. LEQVIO [Suspect]
     Active Substance: INCLISIRAN SODIUM
     Indication: Blood cholesterol increased
     Dosage: FIRST INJECTION
     Route: 030
     Dates: start: 20230330
  2. LEQVIO [Suspect]
     Active Substance: INCLISIRAN SODIUM
     Dosage: SECOND INJECTION
     Route: 058
     Dates: start: 20230710
  3. LEQVIO [Suspect]
     Active Substance: INCLISIRAN SODIUM
     Dosage: THIRD INJECTION
     Route: 058
     Dates: start: 20231101, end: 20240308
  4. CALCIUM [Concomitant]
     Active Substance: CALCIUM
     Indication: Product used for unknown indication
     Dosage: UNK
     Route: 065

REACTIONS (8)
  - Autoimmune thyroiditis [Unknown]
  - Fungal infection [Unknown]
  - Rhinorrhoea [Unknown]
  - Vitamin B12 deficiency [Unknown]
  - Muscle spasms [Recovered/Resolved]
  - Musculoskeletal stiffness [Unknown]
  - Muscle spasms [Recovered/Resolved]
  - Lipids abnormal [Unknown]

NARRATIVE: CASE EVENT DATE: 20230601
